FAERS Safety Report 9484020 (Version 1)
Quarter: 2013Q3

REPORT INFORMATION
  Report Type: Spontaneous
  Country: CA (occurrence: CA)
  Receive Date: 20130828
  Receipt Date: 20130828
  Transmission Date: 20140515
  Serious: Yes (Other)
  Sender: FDA-Public Use
  Company Number: CA-AMGEN-KDL368440

PATIENT
  Age: 50 Year
  Sex: Female
  Weight: 78.5 kg

DRUGS (6)
  1. ENBREL [Suspect]
     Indication: RHEUMATOID ARTHRITIS
     Dosage: UNK UNK, 2 TIMES/WK
     Route: 065
     Dates: start: 20020531, end: 20091006
  2. LEFLUNOMIDE [Concomitant]
     Dosage: UNK UNK, UNK
  3. PREDNISONE [Concomitant]
     Dosage: UNK UNK, UNK
  4. IRON [Concomitant]
     Dosage: UNK UNK, UNK
  5. PANADEINE CO [Concomitant]
     Dosage: UNK UNK, UNK
  6. ACETAMINOPHEN [Concomitant]
     Dosage: UNK UNK, UNK

REACTIONS (1)
  - Therapeutic response decreased [Unknown]
